FAERS Safety Report 5318757-4 (Version None)
Quarter: 2007Q2

REPORT INFORMATION
  Report Type: 
  Country: None (occurrence: None)
  Receive Date: 20070504
  Receipt Date: 20070504
  Transmission Date: 20071010
  Serious: Yes (Other)
  Sender: FDA-Public Use
  Company Number: None

PATIENT
  Age: 62 Year
  Sex: Female
  Weight: 86.1834 kg

DRUGS (6)
  1. FOSAMAX [Suspect]
     Indication: OSTEOPOROSIS
     Dosage: 1 TABLET WEEKLY BY MOUTH
     Route: 048
     Dates: start: 20060601, end: 20070201
  2. SIMVASTATIN [Concomitant]
  3. LEVOXYL [Concomitant]
  4. LACTULOSE [Concomitant]
  5. ASPIRIN [Concomitant]
  6. MULTI-VITAMIN [Concomitant]

REACTIONS (3)
  - GLOSSITIS [None]
  - GLOSSODYNIA [None]
  - THROAT IRRITATION [None]
